FAERS Safety Report 10397231 (Version 1)
Quarter: 2014Q3

REPORT INFORMATION
  Report Type: Spontaneous
  Country: US (occurrence: US)
  Receive Date: 20140820
  Receipt Date: 20140820
  Transmission Date: 20150326
  Serious: No
  Sender: FDA-Public Use
  Company Number: US-PFIZER INC-2014228533

PATIENT
  Sex: Female

DRUGS (1)
  1. CHANTIX [Suspect]
     Active Substance: VARENICLINE TARTRATE
     Indication: SMOKING CESSATION THERAPY
     Dosage: UNK
     Dates: start: 2011

REACTIONS (7)
  - Dizziness [Unknown]
  - Mood altered [Unknown]
  - Abnormal dreams [Unknown]
  - Anxiety [Unknown]
  - Irritability [Unknown]
  - Aggression [Unknown]
  - Nausea [Unknown]
